FAERS Safety Report 22225339 (Version 1)
Quarter: 2023Q2

REPORT INFORMATION
  Report Type: Spontaneous
  Country: FR (occurrence: FR)
  Receive Date: 20230418
  Receipt Date: 20230418
  Transmission Date: 20230722
  Serious: Yes (Hospitalization)
  Sender: FDA-Public Use
  Company Number: None

PATIENT
  Age: 53 Year
  Sex: Male

DRUGS (5)
  1. SKENAN [Suspect]
     Active Substance: MORPHINE SULFATE
  2. BUPRENORPHINE [Suspect]
     Active Substance: BUPRENORPHINE
  3. CANNABIS SATIVA SUBSP. INDICA TOP [Suspect]
     Active Substance: CANNABIS SATIVA SUBSP. INDICA TOP
  4. DIAZEPAM [Suspect]
     Active Substance: DIAZEPAM
  5. COCAINE [Suspect]
     Active Substance: COCAINE

REACTIONS (9)
  - Rhabdomyolysis [Unknown]
  - Hypotension [Unknown]
  - Coma [Recovering/Resolving]
  - Acute respiratory distress syndrome [Unknown]
  - Pulmonary embolism [Unknown]
  - Hypothermia [Unknown]
  - Miosis [Unknown]
  - Acute respiratory failure [Unknown]
  - Drug abuse [Unknown]
